FAERS Safety Report 19012121 (Version 1)
Quarter: 2021Q1

REPORT INFORMATION
  Report Type: Spontaneous
  Country: FR (occurrence: FR)
  Receive Date: 20210315
  Receipt Date: 20210315
  Transmission Date: 20210420
  Serious: Yes (Death, Other)
  Sender: FDA-Public Use
  Company Number: FR-AMGEN-FRASP2021038466

PATIENT

DRUGS (1)
  1. ROMIPLOSTIM [Suspect]
     Active Substance: ROMIPLOSTIM
     Indication: IMMUNE THROMBOCYTOPENIA
     Dosage: UNK
     Route: 065

REACTIONS (8)
  - Cholecystitis [Unknown]
  - Herpes zoster [Unknown]
  - Tooth abscess [Unknown]
  - Adverse event [Unknown]
  - Adenocarcinoma [Fatal]
  - Pulmonary embolism [Unknown]
  - Cerebral venous thrombosis [Unknown]
  - Deep vein thrombosis [Unknown]
